FAERS Safety Report 7394805-5 (Version None)
Quarter: 2011Q2

REPORT INFORMATION
  Report Type: 
  Country: None (occurrence: None)
  Receive Date: 20110405
  Receipt Date: 20110329
  Transmission Date: 20111010
  Serious: Yes (Hospitalization)
  Sender: FDA-Public Use
  Company Number: A0773150A

PATIENT
  Age: 65 Year
  Sex: Male
  Weight: 90.9 kg

DRUGS (8)
  1. AVANDIA [Suspect]
     Indication: DIABETES MELLITUS
     Dosage: 4MG TWICE PER DAY
     Route: 048
     Dates: start: 20050601, end: 20050901
  2. PAXIL [Concomitant]
  3. XANAX [Concomitant]
  4. AVANDAMET [Suspect]
     Indication: DIABETES MELLITUS
     Route: 048
     Dates: start: 20030415, end: 20050501
  5. METFORMIN [Concomitant]
  6. PROSCAR [Concomitant]
  7. LOPRESSOR [Concomitant]
  8. GLUCOTROL [Concomitant]

REACTIONS (3)
  - MYOCARDIAL INFARCTION [None]
  - PERICARDITIS [None]
  - CARDIAC FAILURE CONGESTIVE [None]
